FAERS Safety Report 21789081 (Version 1)
Quarter: 2022Q4

REPORT INFORMATION
  Report Type: Spontaneous
  Country: MX (occurrence: MX)
  Receive Date: 20221228
  Receipt Date: 20221228
  Transmission Date: 20230112
  Serious: Yes (Other)
  Sender: FDA-Public Use
  Company Number: MX-ELI_LILLY_AND_COMPANY-MX202201011081

PATIENT
  Sex: Female
  Weight: 80 kg

DRUGS (5)
  1. FORTEO [Suspect]
     Active Substance: TERIPARATIDE
     Indication: Osteoporosis
     Dosage: 20 UG, DAILY
     Route: 058
     Dates: start: 202201
  2. KEFLEX [Concomitant]
     Active Substance: CEPHALEXIN
     Indication: Product used for unknown indication
  3. ULSEN [OMEPRAZOLE] [Concomitant]
     Indication: Product used for unknown indication
  4. CELECOXIB [Concomitant]
     Active Substance: CELECOXIB
     Indication: Product used for unknown indication
  5. CLONIXIN\CYCLOBENZAPRINE [Concomitant]
     Active Substance: CLONIXIN\CYCLOBENZAPRINE
     Indication: Product used for unknown indication

REACTIONS (1)
  - Bone disorder [Unknown]
